FAERS Safety Report 4698939-5 (Version None)
Quarter: 2005Q2

REPORT INFORMATION
  Report Type: 
  Country: None (occurrence: None)
  Receive Date: 20050624
  Receipt Date: 20050608
  Transmission Date: 20051028
  Serious: Yes (Death, Other)
  Sender: FDA-Public Use
  Company Number: JP-BRISTOL-MYERS SQUIBB COMPANY-12999447

PATIENT
  Age: 60 Year
  Sex: Female

DRUGS (12)
  1. BRIPLATIN [Suspect]
     Indication: GASTRIC CANCER
     Route: 041
     Dates: start: 20021128, end: 20021128
  2. IRINOTECAN HCL [Suspect]
     Indication: GASTRIC CANCER
     Route: 041
     Dates: start: 20021128, end: 20021128
  3. NEUTROGIN [Concomitant]
     Route: 030
     Dates: start: 20021209, end: 20021224
  4. GRAN [Concomitant]
     Route: 030
     Dates: start: 20021225, end: 20030324
  5. CEFMETAZON [Concomitant]
     Route: 042
     Dates: start: 20021209, end: 20021210
  6. MEROPEN [Concomitant]
     Route: 041
     Dates: start: 20021211, end: 20021220
  7. KEITEN [Concomitant]
     Route: 041
     Dates: start: 20021211, end: 20021220
  8. MAXIPIME [Concomitant]
     Route: 041
     Dates: start: 20021225, end: 20030106
  9. EXACIN [Concomitant]
     Route: 041
     Dates: start: 20021225, end: 20030106
  10. BILKLIN [Concomitant]
     Route: 030
     Dates: start: 20030107, end: 20030116
  11. DIFLUCAN [Concomitant]
     Route: 041
     Dates: start: 20030117, end: 20030120
  12. FUNGIZONE [Concomitant]
     Route: 045
     Dates: start: 20030121, end: 20030324

REACTIONS (4)
  - BRONCHOPULMONARY ASPERGILLOSIS [None]
  - DISSEMINATED INTRAVASCULAR COAGULATION [None]
  - NEUTROPENIA [None]
  - PANCYTOPENIA [None]
